FAERS Safety Report 14207995 (Version 4)
Quarter: 2018Q4

REPORT INFORMATION
  Report Type: Report from Study
  Country: DE (occurrence: DE)
  Receive Date: 20171121
  Receipt Date: 20181226
  Transmission Date: 20190204
  Serious: Yes (Other)
  Sender: FDA-Public Use
  Company Number: PHHY2015DE116985

PATIENT
  Sex: Male

DRUGS (2)
  1. TASIGNA [Suspect]
     Active Substance: NILOTINIB
     Indication: CHRONIC MYELOID LEUKAEMIA
     Dosage: 600 MG, QD
     Route: 065
     Dates: start: 201011, end: 20150916
  2. TASIGNA [Suspect]
     Active Substance: NILOTINIB
     Dosage: 300 MG, BID
     Route: 065

REACTIONS (5)
  - Transitional cell carcinoma [Unknown]
  - Bladder neoplasm [Unknown]
  - Second primary malignancy [Unknown]
  - Gamma-glutamyltransferase increased [Recovering/Resolving]
  - Metastases to bladder [Unknown]

NARRATIVE: CASE EVENT DATE: 2015
